FAERS Safety Report 4315016-3 (Version None)
Quarter: 2004Q1

REPORT INFORMATION
  Report Type: 
  Country: None (occurrence: None)
  Receive Date: 20040309
  Receipt Date: 20040224
  Transmission Date: 20041129
  Serious: Yes (Hospitalization)
  Sender: FDA-Public Use
  Company Number: UK067597

PATIENT
  Age: 68 Year
  Sex: Male

DRUGS (7)
  1. KINERET [Suspect]
     Dosage: 1 IN 1 DAYS
     Dates: start: 20030401, end: 20031227
  2. CALCIC ATORVASTATINE [Concomitant]
  3. LANSOPRAZOLE [Concomitant]
  4. PREDNISONE [Concomitant]
  5. FLECAINIDE ACETATE [Concomitant]
  6. ASPIRIN [Concomitant]
  7. SERENOA REPENS [Concomitant]

REACTIONS (4)
  - HYPOXIA [None]
  - LUNG DISORDER [None]
  - LUNG INFECTION [None]
  - PLEURAL DISORDER [None]
